FAERS Safety Report 4350907-9 (Version None)
Quarter: 2004Q2

REPORT INFORMATION
  Report Type: 
  Country: None (occurrence: None)
  Receive Date: 20040430
  Receipt Date: 20040205
  Transmission Date: 20050107
  Serious: No
  Sender: FDA-Public Use
  Company Number: CA-GLAXOSMITHKLINE-A0497127A

PATIENT
  Age: 44 Year
  Sex: Female

DRUGS (1)
  1. AMERGE [Suspect]
     Indication: MIGRAINE
     Dosage: 3TAB PER DAY
     Route: 048
     Dates: start: 20030410, end: 20030411

REACTIONS (4)
  - ASTHENIA [None]
  - HEART RATE INCREASED [None]
  - MUSCLE SPASMS [None]
  - PARAESTHESIA [None]
